FAERS Safety Report 7993061-4 (Version None)
Quarter: 2011Q4

REPORT INFORMATION
  Report Type: 
  Country: None (occurrence: None)
  Receive Date: 20111219
  Receipt Date: 20110624
  Transmission Date: 20120403
  Serious: No
  Sender: FDA-Public Use
  Company Number: US-ASTRAZENECA-2011SE38197

PATIENT
  Age: 75 Year
  Sex: Male

DRUGS (8)
  1. CRESTOR [Suspect]
     Indication: HYPERLIPIDAEMIA
     Route: 048
     Dates: start: 20110101
  2. VITAMIN B-12 [Concomitant]
  3. VITAMIN D [Concomitant]
  4. NIACIN [Suspect]
     Route: 048
  5. PLAVIX [Concomitant]
  6. HYDROCHLOROTHIAZIDE [Concomitant]
  7. PROTONIX [Concomitant]
  8. NIACIN [Suspect]
     Indication: HYPERLIPIDAEMIA
     Route: 048
     Dates: start: 20110101

REACTIONS (1)
  - NEUROPATHY PERIPHERAL [None]
